FAERS Safety Report 8069111-6 (Version None)
Quarter: 2012Q1

REPORT INFORMATION
  Report Type: 
  Country: None (occurrence: None)
  Receive Date: 20120125
  Receipt Date: 20120119
  Transmission Date: 20120608
  Serious: Yes (Other)
  Sender: FDA-Public Use
  Company Number: US-PFIZER INC-2012016175

PATIENT
  Sex: Female
  Weight: 87.5 kg

DRUGS (1)
  1. MEDROXYPROGESTERONE ACETATE [Suspect]
     Indication: CONTRACEPTION
     Dosage: UNK, ONCE IN THREE MONTHS
     Route: 030
     Dates: start: 20110311, end: 20110101

REACTIONS (2)
  - UNINTENDED PREGNANCY [None]
  - DRUG INEFFECTIVE [None]
